FAERS Safety Report 8589931-9 (Version None)
Quarter: 2012Q3

REPORT INFORMATION
  Report Type: 
  Country: None (occurrence: None)
  Receive Date: 20120813
  Receipt Date: 20120807
  Transmission Date: 20120928
  Serious: Yes (Hospitalization)
  Sender: FDA-Public Use
  Company Number: GB-ROCHE-1099075

PATIENT
  Sex: Female

DRUGS (2)
  1. ACTEMRA [Suspect]
     Indication: RHEUMATOID ARTHRITIS
     Dosage: LAST DOSE PRIOR TO SAE 21/DEC/2011
     Dates: start: 20111122
  2. METHOTREXATE [Concomitant]
     Dates: start: 20071018

REACTIONS (2)
  - HIP FRACTURE [None]
  - FALL [None]
